FAERS Safety Report 8368842-8 (Version None)
Quarter: 2012Q2

REPORT INFORMATION
  Report Type: 
  Country: None (occurrence: None)
  Receive Date: 20120518
  Receipt Date: 20120508
  Transmission Date: 20120825
  Serious: Yes (Other)
  Sender: FDA-Public Use
  Company Number: CA-BRISTOL-MYERS SQUIBB COMPANY-16587305

PATIENT
  Age: 54 Year
  Sex: Female

DRUGS (6)
  1. PLAQUENIL [Concomitant]
  2. ARTHROTEC [Concomitant]
  3. AMITRIPTYLINE HCL [Concomitant]
  4. ORENCIA [Suspect]
     Indication: RHEUMATOID ARTHRITIS
     Dosage: SINCE JUN/JUL-2009,OFF FOR ABOUT A YEAR,RESUMED IN DEC-2011
     Route: 042
     Dates: start: 20090101
  5. OMEPRAZOLE (PRISOLEC) [Concomitant]
  6. SPIRONOLACTONE [Concomitant]

REACTIONS (1)
  - FOOT FRACTURE [None]
